FAERS Safety Report 6067567-1 (Version None)
Quarter: 2009Q1

REPORT INFORMATION
  Report Type: 
  Country: None (occurrence: None)
  Receive Date: 20090205
  Receipt Date: 20090130
  Transmission Date: 20090719
  Serious: Yes (Hospitalization)
  Sender: FDA-Public Use
  Company Number: US-GILEAD-2008-0019634

PATIENT
  Sex: Female
  Weight: 68.1 kg

DRUGS (11)
  1. LETAIRIS [Suspect]
     Indication: PULMONARY ARTERIAL HYPERTENSION
     Route: 048
     Dates: start: 20081203
  2. LASIX [Concomitant]
     Route: 048
  3. ZOLOFT [Concomitant]
     Route: 048
  4. LACTULOSE [Concomitant]
     Route: 048
  5. REVATIO [Concomitant]
     Route: 048
  6. URSODIOL [Concomitant]
     Route: 048
  7. MAGOX [Concomitant]
     Route: 048
  8. SPIRONOLACTONE [Concomitant]
     Route: 048
  9. ZOLPIDEM TARTRATE [Concomitant]
     Route: 048
  10. HYDROXYZINE [Concomitant]
     Route: 048
  11. VITAMIN D [Concomitant]
     Route: 048

REACTIONS (2)
  - CARDIAC FAILURE [None]
  - OEDEMA [None]
